FAERS Safety Report 26141294 (Version 1)
Quarter: 2025Q4

REPORT INFORMATION
  Report Type: Spontaneous
  Country: US (occurrence: US)
  Receive Date: 20251210
  Receipt Date: 20251210
  Transmission Date: 20260118
  Serious: Yes (Other)
  Sender: GILEAD
  Company Number: US-GILEAD-2025-0739952

PATIENT
  Age: 51 Year
  Sex: Female

DRUGS (4)
  1. YESCARTA [Suspect]
     Active Substance: AXICABTAGENE CILOLEUCEL
     Indication: Follicular lymphoma
     Dosage: UNK
     Route: 065
     Dates: start: 202409
  2. KEPPRA [Concomitant]
     Active Substance: LEVETIRACETAM
     Indication: Seizure prophylaxis
     Dosage: 750 MG, BID
  3. DEXAMETHASONE [Concomitant]
     Active Substance: DEXAMETHASONE
     Dosage: UNK, Q6H
     Route: 042
  4. METHYLPREDNISOLONE [Concomitant]
     Active Substance: METHYLPREDNISOLONE
     Dosage: 1 G, QD

REACTIONS (7)
  - Brain oedema [Unknown]
  - Demyelination [Unknown]
  - Urinary retention [Unknown]
  - Quadriplegia [Unknown]
  - Myelitis [Unknown]
  - Immune effector cell-associated neurotoxicity syndrome [Unknown]
  - Cytokine release syndrome [Not Recovered/Not Resolved]
